FAERS Safety Report 12079659 (Version 3)
Quarter: 2016Q2

REPORT INFORMATION
  Report Type: Spontaneous
  Country: US (occurrence: US)
  Receive Date: 20160216
  Receipt Date: 20160425
  Transmission Date: 20160815
  Serious: No
  Sender: FDA-Public Use
  Company Number: US-PFIZER INC-2016076072

PATIENT
  Age: 56 Year
  Sex: Female

DRUGS (4)
  1. BIOTIN [Concomitant]
     Active Substance: BIOTIN
     Dosage: UNK
  2. FASLODEX [Concomitant]
     Active Substance: FULVESTRANT
     Dosage: UNK
  3. CLONAZEPAM. [Concomitant]
     Active Substance: CLONAZEPAM
     Dosage: UNK
  4. IBRANCE [Suspect]
     Active Substance: PALBOCICLIB
     Indication: BREAST CANCER
     Dosage: 125 MG, CYCLIC (21 DAYS, REST FOR 7 DAYS) (21 DAYS ON + 7 DAYS OFF)
     Route: 048
     Dates: start: 20150716

REACTIONS (6)
  - Influenza like illness [Unknown]
  - Product use issue [Unknown]
  - Ephelides [Unknown]
  - Oropharyngeal pain [Unknown]
  - Nail disorder [Unknown]
  - Headache [Unknown]
